FAERS Safety Report 22072338 (Version 2)
Quarter: 2023Q4

REPORT INFORMATION
  Report Type: Spontaneous
  Country: JP (occurrence: JP)
  Receive Date: 20230308
  Receipt Date: 20231009
  Transmission Date: 20240109
  Serious: Yes (Other)
  Sender: FDA-Public Use
  Company Number: JP-TAIHO-2023-001540

PATIENT
  Age: 42 Year
  Sex: Female
  Weight: 54 kg

DRUGS (5)
  1. ABRAXANE [Suspect]
     Active Substance: PACLITAXEL
     Indication: Invasive ductal breast carcinoma
     Dosage: 390 MG/DAY, DETAILS NOT REPORTED, 2 DOSING DAYS DAILY DOSE: 390 MILLIGRAM(S)
     Route: 041
     Dates: start: 20221004, end: 20221114
  2. TRASTUZUMAB [Concomitant]
     Active Substance: TRASTUZUMAB
     Indication: Invasive ductal breast carcinoma
     Dosage: 330 MG/DAY, DETAILS NOT REPORTED, 7 DOSING DAYS, 8 CYCLES DAILY DOSE: 330 MILLIGRAM(S)
     Dates: start: 20220621, end: 20221114
  3. TRASTUZUMAB [Concomitant]
     Active Substance: TRASTUZUMAB
     Dosage: NI, CYCLE 9
  4. PERJETA [Concomitant]
     Active Substance: PERTUZUMAB
     Indication: Invasive ductal breast carcinoma
     Dosage: 420 MG/DAY, DETAILS NOT REPORTED, 7 DOSING DAYS, 8 CYCLES DAILY DOSE: 420 MILLIGRAM(S)
     Dates: start: 20220621, end: 20221114
  5. PERJETA [Concomitant]
     Active Substance: PERTUZUMAB
     Dosage: NI, CYCLE 9
     Dates: start: 202212

REACTIONS (1)
  - Pseudocirrhosis [Recovering/Resolving]

NARRATIVE: CASE EVENT DATE: 20221115
